FAERS Safety Report 5687305-1 (Version None)
Quarter: 2008Q1

REPORT INFORMATION
  Report Type: 
  Country: None (occurrence: None)
  Receive Date: 20080328
  Receipt Date: 20070514
  Transmission Date: 20080703
  Serious: No
  Sender: FDA-Public Use
  Company Number: US-BAYER-US-2006-039522

PATIENT
  Age: 27 Year
  Sex: Female
  Weight: 64 kg

DRUGS (1)
  1. MIRENA [Suspect]
     Indication: CONTRACEPTION
     Route: 015
     Dates: start: 20061005, end: 20061108

REACTIONS (2)
  - DRUG EXPOSURE DURING PREGNANCY [None]
  - MEDICATION ERROR [None]
